FAERS Safety Report 6939967-6 (Version None)
Quarter: 2010Q3

REPORT INFORMATION
  Report Type: 
  Country: None (occurrence: None)
  Receive Date: 20100825
  Receipt Date: 20100813
  Transmission Date: 20110219
  Serious: Yes (Other)
  Sender: FDA-Public Use
  Company Number: FR-PFIZER INC-2010101950

PATIENT
  Sex: Female
  Weight: 60 kg

DRUGS (1)
  1. EXEMESTANE [Suspect]
     Indication: BREAST CANCER
     Dosage: UNK

REACTIONS (2)
  - AFFECTIVE DISORDER [None]
  - ARTHRALGIA [None]
